FAERS Safety Report 15667028 (Version 1)
Quarter: 2018Q4

REPORT INFORMATION
  Report Type: Spontaneous
  Country: US (occurrence: US)
  Receive Date: 20181128
  Receipt Date: 20181128
  Transmission Date: 20190205
  Serious: No
  Sender: FDA-Public Use
  Company Number: US-ROCHE-2169646

PATIENT
  Sex: Female

DRUGS (2)
  1. OCREVUS [Suspect]
     Active Substance: OCRELIZUMAB
     Dosage: HALF DOSE, ONGOING: YES
     Route: 042
     Dates: start: 20180313
  2. OCREVUS [Suspect]
     Active Substance: OCRELIZUMAB
     Indication: PRIMARY PROGRESSIVE MULTIPLE SCLEROSIS
     Dosage: HALF DOSE EACH TIME, ONGOING: YES
     Route: 042
     Dates: start: 20180306

REACTIONS (8)
  - Balance disorder [Unknown]
  - Coordination abnormal [Unknown]
  - Fall [Unknown]
  - Fatigue [Unknown]
  - Onychoclasis [Unknown]
  - Dysphonia [Unknown]
  - Vision blurred [Unknown]
  - Eating disorder [Unknown]

NARRATIVE: CASE EVENT DATE: 20180719
